FAERS Safety Report 6902522-8 (Version None)
Quarter: 2010Q3

REPORT INFORMATION
  Report Type: 
  Country: None (occurrence: None)
  Receive Date: 20100730
  Receipt Date: 20100715
  Transmission Date: 20110219
  Serious: Yes (Other)
  Sender: FDA-Public Use
  Company Number: 1000015260

PATIENT
  Age: 35 Year
  Sex: Female
  Weight: 126 kg

DRUGS (4)
  1. ESCITALOPRAM OXALATE [Suspect]
     Dosage: 600 MG, ONCE, ORAL
     Route: 048
     Dates: start: 20100715, end: 20100715
  2. TRAMADOLOR (100 MILLIGRAM, SUSTAINED-RELEASE TABLET) [Suspect]
     Dosage: 1000 MG, ONCE, ORAL
     Route: 048
     Dates: start: 20100715, end: 20100715
  3. ATACAND [Suspect]
     Dosage: 112 MG, ONCE, ORAL
     Route: 048
     Dates: start: 20100715, end: 20100715
  4. ALCOHOL [Suspect]
     Dosage: ONCE, ORAL
     Route: 048
     Dates: start: 20100715, end: 20100715

REACTIONS (4)
  - AGITATION [None]
  - ALCOHOL POISONING [None]
  - MULTIPLE DRUG OVERDOSE INTENTIONAL [None]
  - SUICIDE ATTEMPT [None]
